FAERS Safety Report 5138104-0 (Version None)
Quarter: 2006Q4

REPORT INFORMATION
  Report Type: 
  Country: None (occurrence: None)
  Receive Date: 20061030
  Receipt Date: 20060411
  Transmission Date: 20070319
  Serious: No
  Sender: FDA-Public Use
  Company Number: US-GLAXOSMITHKLINE-A0601919A

PATIENT
  Age: 62 Year
  Sex: Male

DRUGS (17)
  1. ADVAIR HFA [Suspect]
     Indication: ASTHMA
     Dosage: 1PUFF TWICE PER DAY
     Route: 055
     Dates: end: 20060301
  2. PREVACID [Concomitant]
  3. ATENOLOL [Concomitant]
  4. ASPIRIN [Concomitant]
  5. LISINOPRIL [Concomitant]
  6. DITROPAN [Concomitant]
  7. HYDROCHLOROTHIAZIDE [Concomitant]
  8. MULTI-VITAMIN [Concomitant]
  9. BECONASE [Concomitant]
  10. FLOMAX [Concomitant]
  11. AVODART [Concomitant]
  12. IRON SUPPLEMENT [Concomitant]
  13. DEPAKOTE [Concomitant]
  14. LUVOX [Concomitant]
  15. RISPERDAL [Concomitant]
  16. TOPAMAX [Concomitant]
  17. AMBIEN [Concomitant]

REACTIONS (2)
  - APHONIA [None]
  - DYSPHONIA [None]
